FAERS Safety Report 9065610 (Version 2)
Quarter: 2013Q2

REPORT INFORMATION
  Report Type: Spontaneous
  Country: US (occurrence: US)
  Receive Date: 20130206
  Receipt Date: 20130617
  Transmission Date: 20140414
  Serious: Yes (Hospitalization)
  Sender: FDA-Public Use
  Company Number: US-BAYER-2013-014935

PATIENT
  Age: 34 Year
  Sex: Female

DRUGS (8)
  1. YASMIN [Suspect]
  2. LASIX [FUROSEMIDE] [Concomitant]
  3. CLONAZEPAM [Concomitant]
  4. SEROQUEL [Concomitant]
  5. LEVOXYL [Concomitant]
  6. WELLBUTRIN [Concomitant]
  7. POTASSIUM [POTASSIUM] [Concomitant]
  8. DARVOCET [Concomitant]

REACTIONS (1)
  - Pulmonary embolism [None]
